FAERS Safety Report 15388849 (Version 1)
Quarter: 2018Q3

REPORT INFORMATION
  Report Type: Spontaneous
  Country: BR (occurrence: BR)
  Receive Date: 20180916
  Receipt Date: 20180916
  Transmission Date: 20181010
  Serious: Yes (Other)
  Sender: FDA-Public Use
  Company Number: BR-BAXTER-2018BAX022716

PATIENT
  Age: 12 Year
  Sex: Male
  Weight: 45 kg

DRUGS (3)
  1. BUPICAN HEAVY [Suspect]
     Active Substance: BUPIVACAINE HYDROCHLORIDE
     Dosage: ONE AMPOULE (ADDITIONAL DOSAGE)
     Route: 037
     Dates: start: 20180823, end: 20180823
  2. BUPICAN HEAVY [Suspect]
     Active Substance: BUPIVACAINE HYDROCHLORIDE
     Indication: SPINAL ANAESTHESIA
     Dosage: ONE AMPOULE (INITIAL DOSE)
     Route: 037
     Dates: start: 20180823, end: 20180823
  3. BUPIVACAINE. [Suspect]
     Active Substance: BUPIVACAINE
     Indication: SPINAL ANAESTHESIA
     Dosage: AMPOULE
     Route: 065
     Dates: start: 20180823, end: 20180823

REACTIONS (3)
  - Respiratory distress [Recovered/Resolved]
  - Incorrect dose administered [Recovered/Resolved]
  - Treatment failure [Recovered/Resolved]

NARRATIVE: CASE EVENT DATE: 20180823
